FAERS Safety Report 6664209-9 (Version None)
Quarter: 2010Q2

REPORT INFORMATION
  Report Type: 
  Country: None (occurrence: None)
  Receive Date: 20100401
  Receipt Date: 20100322
  Transmission Date: 20101027
  Serious: Yes (Hospitalization, Other)
  Sender: FDA-Public Use
  Company Number: US-PFIZER INC-2009298818

PATIENT
  Sex: Female

DRUGS (2)
  1. CHANTIX [Suspect]
     Indication: SMOKING CESSATION THERAPY
     Dosage: 0.5 MG, UNK
     Route: 048
     Dates: start: 20090601, end: 20090101
  2. CHANTIX [Suspect]
     Dosage: UNK
     Route: 048

REACTIONS (5)
  - BACK DISORDER [None]
  - FEELING ABNORMAL [None]
  - SPINAL CORD DISORDER [None]
  - SURGERY [None]
  - WEIGHT INCREASED [None]
